FAERS Safety Report 20614557 (Version 2)
Quarter: 2022Q2

REPORT INFORMATION
  Report Type: Spontaneous
  Country: GB (occurrence: GB)
  Receive Date: 20220321
  Receipt Date: 20220415
  Transmission Date: 20220721
  Serious: Yes (Other)
  Sender: FDA-Public Use
  Company Number: GB-BoehringerIngelheim-2021-BI-123761

PATIENT
  Age: 18 Year
  Sex: Female
  Weight: 113 kg

DRUGS (2)
  1. GILOTRIF [Suspect]
     Active Substance: AFATINIB
     Indication: Fibrous histiocytoma
     Dates: start: 20210813
  2. GILOTRIF [Suspect]
     Active Substance: AFATINIB

REACTIONS (3)
  - Nodule [Not Recovered/Not Resolved]
  - Diarrhoea [Unknown]
  - Off label use [Recovered/Resolved]

NARRATIVE: CASE EVENT DATE: 20210827
